FAERS Safety Report 7092814-7 (Version None)
Quarter: 2010Q4

REPORT INFORMATION
  Report Type: 
  Country: None (occurrence: None)
  Receive Date: 20101018
  Receipt Date: 20090818
  Transmission Date: 20110411
  Serious: Yes (Death)
  Sender: FDA-Public Use
  Company Number: 2009S1000367

PATIENT
  Age: 20 Year
  Sex: Male

DRUGS (3)
  1. DARVON [Suspect]
     Dosage: PO
     Route: 048
     Dates: end: 20061209
  2. OXYCODONE HCL [Suspect]
     Dosage: INH
     Route: 055
     Dates: end: 20061209
  3. ALPRAZOLAM [Suspect]
     Dosage: PO
     Route: 048
     Dates: end: 20061209

REACTIONS (2)
  - DRUG INTERACTION [None]
  - DRUG TOXICITY [None]
